FAERS Safety Report 4467016-0 (Version None)
Quarter: 2004Q3

REPORT INFORMATION
  Report Type: 
  Country: None (occurrence: None)
  Receive Date: 20040929
  Receipt Date: 20040929
  Transmission Date: 20050211
  Serious: Yes (Life-Threatening)
  Sender: FDA-Public Use
  Company Number: None

PATIENT
  Age: 47 Year
  Sex: Male
  Weight: 70.3075 kg

DRUGS (3)
  1. SPORANOX [Suspect]
     Dosage: 4PILLS DAILY  7 DAYS  ORAL
     Route: 048
     Dates: start: 20040901, end: 20040907
  2. MULTI-VITAMINS [Concomitant]
  3. PROPECIA [Concomitant]

REACTIONS (6)
  - CHEST PAIN [None]
  - DYSPNOEA [None]
  - HEART ALTERNATION [None]
  - HEART RATE INCREASED [None]
  - HEART RATE IRREGULAR [None]
  - URINE ODOUR ABNORMAL [None]
